FAERS Safety Report 5456773-2 (Version None)
Quarter: 2007Q3

REPORT INFORMATION
  Report Type: 
  Country: None (occurrence: None)
  Receive Date: 20070918
  Receipt Date: 20070430
  Transmission Date: 20080115
  Serious: Yes (Other)
  Sender: FDA-Public Use
  Company Number: US-ASTRAZENECA-2006UW26385

PATIENT
  Sex: Female
  Weight: 109.1 kg

DRUGS (13)
  1. SEROQUEL [Suspect]
     Indication: SCHIZOPHRENIA, PARANOID TYPE
     Dosage: 300 MG IN THE MORNING, 600 MG AT NIGHT
     Route: 048
     Dates: start: 20000101
  2. SEROQUEL [Suspect]
     Route: 048
     Dates: start: 20000101
  3. ABILIFY [Concomitant]
  4. CLOZARIL [Concomitant]
  5. GEODON [Concomitant]
     Dates: start: 20020101
  6. HALDOL [Concomitant]
     Dates: start: 20000101
  7. NAVANE [Concomitant]
  8. RISPERDAL [Concomitant]
     Dates: start: 20020101
  9. SOLIAN [Concomitant]
  10. STELAZINE [Concomitant]
  11. THORAZINE [Concomitant]
  12. TRILAFON [Concomitant]
  13. ZYPREXA [Concomitant]
     Dates: start: 20000101

REACTIONS (2)
  - NEUROLEPTIC MALIGNANT SYNDROME [None]
  - TYPE 1 DIABETES MELLITUS [None]
